FAERS Safety Report 5191493-3 (Version None)
Quarter: 2006Q4

REPORT INFORMATION
  Report Type: 
  Country: None (occurrence: None)
  Receive Date: 20061219
  Receipt Date: 20061204
  Transmission Date: 20070319
  Serious: Yes (Other)
  Sender: FDA-Public Use
  Company Number: 009460

PATIENT
  Age: 81 Year
  Sex: Female
  Weight: 50.8 kg

DRUGS (5)
  1. ETHAMBUTOL HYDROCHLORIDE [Suspect]
     Indication: MYCOBACTERIUM AVIUM COMPLEX INFECTION
     Dosage: 1 TABLET, TID, ORAL
     Route: 048
     Dates: start: 20050202, end: 20050401
  2. ETHAMBUTOL HYDROCHLORIDE [Suspect]
     Indication: MYCOBACTERIUM AVIUM COMPLEX INFECTION
     Dosage: 1 TABLET, TID, ORAL
     Route: 048
     Dates: start: 20050401, end: 20060113
  3. ETHAMBUTOL HYDROCHLORIDE [Suspect]
     Indication: MYCOBACTERIUM AVIUM COMPLEX INFECTION
     Dosage: 1 TABLET, TID, ORAL
     Route: 048
     Dates: start: 20060113, end: 20060301
  4. ETHAMBUTOL HYDROCHLORIDE [Suspect]
     Indication: MYCOBACTERIUM AVIUM COMPLEX INFECTION
     Dosage: 1 TABLET, TID, ORAL
     Route: 048
     Dates: start: 20060301, end: 20060605
  5. CLARITHROMYCIN [Concomitant]

REACTIONS (6)
  - COLOUR BLINDNESS [None]
  - DRUG TOXICITY [None]
  - OPTIC ATROPHY [None]
  - OPTIC NEURITIS [None]
  - OPTIC NEUROPATHY [None]
  - WEIGHT DECREASED [None]
